FAERS Safety Report 23337567 (Version 2)
Quarter: 2025Q1

REPORT INFORMATION
  Report Type: Report from Study
  Country: CA (occurrence: CA)
  Receive Date: 20231226
  Receipt Date: 20250318
  Transmission Date: 20250409
  Serious: Yes (Other)
  Sender: TAKEDA
  Company Number: CA-TAKEDA-2017TUS022431

PATIENT
  Age: 32 Year
  Sex: Male

DRUGS (6)
  1. VEDOLIZUMAB [Suspect]
     Active Substance: VEDOLIZUMAB
     Indication: Colitis ulcerative
  2. VEDOLIZUMAB [Suspect]
     Active Substance: VEDOLIZUMAB
  3. VEDOLIZUMAB [Suspect]
     Active Substance: VEDOLIZUMAB
  4. VEDOLIZUMAB [Suspect]
     Active Substance: VEDOLIZUMAB
  5. VEDOLIZUMAB [Suspect]
     Active Substance: VEDOLIZUMAB
  6. Salofalk [Concomitant]

REACTIONS (8)
  - Anxiety [Not Recovered/Not Resolved]
  - Pneumonia [Recovered/Resolved]
  - Dyspepsia [Not Recovered/Not Resolved]
  - Frequent bowel movements [Unknown]
  - Abdominal pain upper [Unknown]
  - Malaise [Not Recovered/Not Resolved]
  - Asthenia [Unknown]
  - Nasopharyngitis [Not Recovered/Not Resolved]

NARRATIVE: CASE EVENT DATE: 20171001
